FAERS Safety Report 6495691-8 (Version None)
Quarter: 2009Q4

REPORT INFORMATION
  Report Type: 
  Country: None (occurrence: None)
  Receive Date: 20091214
  Receipt Date: 20090728
  Transmission Date: 20100525
  Serious: No
  Sender: FDA-Public Use
  Company Number: US-BRISTOL-MYERS SQUIBB COMPANY-14724298

PATIENT
  Age: 54 Year
  Sex: Female

DRUGS (1)
  1. ABILIFY [Suspect]
     Dosage: FREQ: HS STARTED WITH 15MG P.O. QD FOR 2 YEARS
     Route: 048

REACTIONS (1)
  - HYPOTENSION [None]
